FAERS Safety Report 6819733-2 (Version None)
Quarter: 2010Q3

REPORT INFORMATION
  Report Type: 
  Country: None (occurrence: None)
  Receive Date: 20100707
  Receipt Date: 20100629
  Transmission Date: 20110219
  Serious: Yes (Hospitalization, Other)
  Sender: FDA-Public Use
  Company Number: ES-AMGEN-QUU412855

PATIENT
  Sex: Male
  Weight: 80 kg

DRUGS (8)
  1. NPLATE [Suspect]
     Indication: IDIOPATHIC THROMBOCYTOPENIC PURPURA
     Dates: start: 20090923, end: 20100407
  2. PREDNISONE [Concomitant]
     Route: 048
  3. ENALAPRIL MALEATE [Concomitant]
     Route: 048
     Dates: start: 20100201
  4. FUROSEMIDE [Concomitant]
     Route: 048
     Dates: start: 20100201
  5. INSULIN [Concomitant]
     Route: 058
  6. OMEPRAZOLE [Concomitant]
     Route: 048
  7. AMOXICILLIN [Concomitant]
  8. ALLOPURINOL [Concomitant]

REACTIONS (4)
  - CARDIAC FAILURE [None]
  - DIABETES MELLITUS [None]
  - FLUID RETENTION [None]
  - THERAPEUTIC RESPONSE DECREASED [None]
